FAERS Safety Report 4807738-2 (Version None)
Quarter: 2005Q4

REPORT INFORMATION
  Report Type: 
  Country: None (occurrence: None)
  Receive Date: 20051019
  Receipt Date: 20051007
  Transmission Date: 20060501
  Serious: Yes (Hospitalization)
  Sender: FDA-Public Use
  Company Number: IT-2005-015114

PATIENT
  Age: 35 Year
  Sex: Male

DRUGS (1)
  1. ULTRAVIST 370 [Suspect]
     Indication: COMPUTERISED TOMOGRAM
     Dosage: 1DOSE, INTRAVENOUS
     Route: 042
     Dates: start: 20050722, end: 20050722

REACTIONS (7)
  - ANAPHYLACTIC SHOCK [None]
  - FACE OEDEMA [None]
  - HYPERHIDROSIS [None]
  - LOSS OF CONSCIOUSNESS [None]
  - PRURITUS [None]
  - PULSE PRESSURE DECREASED [None]
  - VOMITING [None]
